FAERS Safety Report 8136119-1 (Version None)
Quarter: 2012Q1

REPORT INFORMATION
  Report Type: 
  Country: None (occurrence: None)
  Receive Date: 20120214
  Receipt Date: 20120203
  Transmission Date: 20120608
  Serious: Yes (Death, Other)
  Sender: FDA-Public Use
  Company Number: US-COVIDIEN/TYCO HEALTHCARE/MALLINCKRODT-T201200565

PATIENT
  Sex: Male

DRUGS (4)
  1. FENTANYL-100 [Suspect]
     Indication: PROCEDURAL PAIN
     Dosage: UNK
     Dates: start: 20111128
  2. PROMETHAZINE [Suspect]
     Indication: NAUSEA
     Dosage: UNK
     Dates: start: 20111201
  3. ALL OTHER THERAPEUTIC PRODUCTS [Suspect]
     Dosage: UNK
     Dates: start: 20111201
  4. DEMEROL [Suspect]
     Indication: PAIN
     Dosage: UNK
     Dates: start: 20111201

REACTIONS (2)
  - OXYGEN SATURATION DECREASED [None]
  - MULTIPLE DRUG OVERDOSE [None]
